FAERS Safety Report 24081139 (Version 1)
Quarter: 2024Q3

REPORT INFORMATION
  Report Type: Spontaneous
  Country: JP (occurrence: JP)
  Receive Date: 20240711
  Receipt Date: 20240711
  Transmission Date: 20241017
  Serious: Yes (Hospitalization)
  Sender: EISAI
  Company Number: JP-Eisai-202404431_LEN-EC_P_1

PATIENT
  Sex: Female

DRUGS (3)
  1. LENVIMA [Suspect]
     Active Substance: LENVATINIB
     Indication: Endometrial cancer
     Dosage: DOSE AND FREQUENCY UNKNOWN
     Route: 048
  2. LENVIMA [Suspect]
     Active Substance: LENVATINIB
     Dosage: DOSE REDUCED. DOSE AND FREQUENCY UNKNOWN.
     Route: 048
  3. KEYTRUDA [Concomitant]
     Active Substance: PEMBROLIZUMAB
     Indication: Endometrial cancer
     Dosage: DOSE UNKNOWN
     Route: 041

REACTIONS (2)
  - Decreased appetite [Unknown]
  - Hypertension [Unknown]
